FAERS Safety Report 22596860 (Version 2)
Quarter: 2023Q2

REPORT INFORMATION
  Report Type: Report from Study
  Country: NL (occurrence: NL)
  Receive Date: 20230613
  Receipt Date: 20230614
  Transmission Date: 20230722
  Serious: Yes (Hospitalization)
  Sender: FDA-Public Use
  Company Number: NL-GENMAB-2023-00740

PATIENT
  Age: 69 Year
  Sex: Male
  Weight: 79.2 kg

DRUGS (33)
  1. EPCORITAMAB [Suspect]
     Active Substance: EPCORITAMAB
     Indication: Diffuse large B-cell lymphoma stage IV
     Dosage: PRIMING DOSE: 0.16 MILLIGRAM, SINGLE
     Route: 058
     Dates: start: 20230208, end: 20230208
  2. EPCORITAMAB [Suspect]
     Active Substance: EPCORITAMAB
     Dosage: INTERMEDIATE DOSE: 0.8 MILLIGRAM, SINGLE
     Route: 058
     Dates: start: 20230215, end: 20230215
  3. EPCORITAMAB [Suspect]
     Active Substance: EPCORITAMAB
     Dosage: FULL DOSE: 48 MILLIGRAM, WEEKLY
     Route: 058
     Dates: start: 20230222, end: 20230301
  4. EPCORITAMAB [Suspect]
     Active Substance: EPCORITAMAB
     Dosage: RPD1: 0.16 MILLIGRAM, SINGLE
     Route: 058
     Dates: start: 20230419, end: 20230419
  5. GEMCITABINE [Suspect]
     Active Substance: GEMCITABINE
     Indication: Diffuse large B-cell lymphoma stage IV
     Dosage: 1000 MILLIGRAM/SQ. METER, SINGLE (1Q2W)
     Route: 042
     Dates: start: 20230208, end: 20230208
  6. GEMCITABINE [Suspect]
     Active Substance: GEMCITABINE
     Dosage: 1000 MILLIGRAM/SQ. METER, SINGLE (1Q2W)
     Route: 042
     Dates: start: 20230222, end: 20230222
  7. GEMCITABINE [Suspect]
     Active Substance: GEMCITABINE
     Dosage: RPD1: 1000 MILLIGRAM/SQ. METER, SINGLE
     Route: 042
     Dates: start: 20230419, end: 20230419
  8. OXALIPLATIN [Suspect]
     Active Substance: OXALIPLATIN
     Indication: Diffuse large B-cell lymphoma stage IV
     Dosage: 100 MILLIGRAM/SQ. METER, SINGLE (1Q2W)
     Route: 042
     Dates: start: 20230208, end: 20230208
  9. OXALIPLATIN [Suspect]
     Active Substance: OXALIPLATIN
     Dosage: 100 MILLIGRAM/SQ. METER (1Q2W)
     Route: 042
     Dates: start: 20230222, end: 20230222
  10. OXALIPLATIN [Suspect]
     Active Substance: OXALIPLATIN
     Dosage: RPD1: 100 MILLIGRAM/SQ. METER (1Q2W)
     Route: 042
     Dates: start: 20230419, end: 20230419
  11. CLEMASTINE [Concomitant]
     Active Substance: CLEMASTINE
     Indication: Premedication
     Dosage: 2 MILLIGRAM, SINGLE
     Route: 048
     Dates: start: 20230419, end: 20230419
  12. ACETAMINOPHEN [Concomitant]
     Active Substance: ACETAMINOPHEN
     Indication: Premedication
     Dosage: 1000 MILLIGRAM, SINGLE
     Route: 048
     Dates: start: 20230419, end: 20230419
  13. DEXAMETHASONE [Concomitant]
     Active Substance: DEXAMETHASONE
     Indication: Prophylaxis
     Dosage: 8 MILLIGRAM, SINGLE
     Route: 042
     Dates: start: 20230419, end: 20230419
  14. ASPIRIN [Concomitant]
     Active Substance: ASPIRIN
     Dosage: 80 MILLIGRAM, QD
     Route: 048
     Dates: start: 20230110
  15. AMITRIPTYLINE [Concomitant]
     Active Substance: AMITRIPTYLINE
     Indication: Prophylaxis
     Dosage: 25 MILLIGRAM, QD
     Route: 048
     Dates: start: 20230301
  16. SULFAMETHOXAZOLE\TRIMETHOPRIM [Concomitant]
     Active Substance: SULFAMETHOXAZOLE\TRIMETHOPRIM
     Dosage: 480 MILLIGRAM, QD
     Route: 048
     Dates: start: 20220502
  17. FOLIC ACID [Concomitant]
     Active Substance: FOLIC ACID
     Dosage: 5 MILLIGRAM, WEEKLY
     Route: 048
     Dates: start: 20220616
  18. GRANISETRON [Concomitant]
     Active Substance: GRANISETRON
     Indication: Prophylaxis
     Dosage: 1 MILLIGRAM, SINGLE
     Route: 042
     Dates: start: 20230419, end: 20230419
  19. POLYETHYLENE GLYCOLS [Concomitant]
     Active Substance: POLYETHYLENE GLYCOLS
     Dosage: 1 DOSAGE FORM (SACHET), PRN
     Route: 048
     Dates: start: 20220131
  20. NANOGAM [Concomitant]
     Active Substance: HUMAN IMMUNOGLOBULIN G
     Dosage: 30 GRAM, MONTHLY
     Route: 042
     Dates: start: 20221222
  21. PANTOPRAZOLE [Concomitant]
     Active Substance: PANTOPRAZOLE
     Dosage: 40 MILLIGRAM, QD
     Route: 048
     Dates: start: 20220218
  22. POTASSIUM CHLORIDE [Concomitant]
     Active Substance: POTASSIUM CHLORIDE
     Indication: Hypokalaemia
     Dosage: 40 MILLIMOLE, QD
     Route: 042
     Dates: start: 20230426, end: 20230428
  23. POTASSIUM CHLORIDE [Concomitant]
     Active Substance: POTASSIUM CHLORIDE
     Dosage: 20 MILLIGRAM, BID
     Route: 048
     Dates: start: 20230502, end: 20230505
  24. SIMVASTATIN [Concomitant]
     Active Substance: SIMVASTATIN
     Dosage: 40 MILLIGRAM, QD
     Route: 048
     Dates: start: 20211103
  25. VALACYCLOVIR HYDROCHLORIDE [Concomitant]
     Active Substance: VALACYCLOVIR HYDROCHLORIDE
     Dosage: 500 MILLIGRAM, BID
     Route: 048
     Dates: start: 20220530
  26. VALGANCICLOVIR [Concomitant]
     Active Substance: VALGANCICLOVIR
     Indication: Cytomegalovirus infection
     Dosage: 900 MILLIGRAM, BID
     Route: 048
     Dates: start: 20230329, end: 20230415
  27. DOXYCYCLINE [Concomitant]
     Active Substance: DOXYCYCLINE
     Indication: Haemophilus sepsis
     Dosage: 200 MILLIGRAM, SINGLE
     Route: 048
     Dates: start: 20230406, end: 20230406
  28. DOXYCYCLINE [Concomitant]
     Active Substance: DOXYCYCLINE
     Dosage: 100 MILLIGRAM, QD
     Route: 048
     Dates: start: 20230407, end: 20230419
  29. CLEMASTINE [Concomitant]
     Active Substance: CLEMASTINE
     Indication: Prophylaxis
     Dosage: 2 MILLIGRAM, SINGLE
     Route: 042
     Dates: start: 20230508, end: 20230508
  30. NADROPARIN [Concomitant]
     Active Substance: NADROPARIN
     Indication: Prophylaxis
     Dosage: 5700 INTERNATIONAL UNIT, SINGLE
     Route: 058
     Dates: start: 20230426, end: 20230426
  31. NADROPARIN [Concomitant]
     Active Substance: NADROPARIN
     Dosage: 5700 INTERNATIONAL UNIT, QD
     Route: 058
     Dates: start: 20230502, end: 20230510
  32. VORICONAZOLE [Concomitant]
     Active Substance: VORICONAZOLE
     Indication: Pneumonia fungal
     Dosage: 200 MILLIGRAM, BID
     Route: 048
     Dates: start: 20230317, end: 20230426
  33. AUGMENTIN [Concomitant]
     Active Substance: AMOXICILLIN\CLAVULANATE POTASSIUM
     Indication: Escherichia infection
     Dosage: 1 DOSAGE FORM, QID
     Route: 048
     Dates: start: 20230510, end: 20230523

REACTIONS (1)
  - Pulmonary sepsis [Recovered/Resolved]

NARRATIVE: CASE EVENT DATE: 20230424
